FAERS Safety Report 6838938-8 (Version None)
Quarter: 2010Q3

REPORT INFORMATION
  Report Type: 
  Country: None (occurrence: None)
  Receive Date: 20100713
  Receipt Date: 20071109
  Transmission Date: 20110219
  Serious: No
  Sender: FDA-Public Use
  Company Number: US-PFIZER INC-2007050877

PATIENT
  Sex: Female
  Weight: 59.4 kg

DRUGS (9)
  1. CHANTIX [Suspect]
     Indication: SMOKING CESSATION THERAPY
     Dates: start: 20070701
  2. CHANTIX [Suspect]
     Indication: TOBACCO ABUSE
  3. LEXAPRO [Concomitant]
     Route: 048
  4. KEFLEX [Concomitant]
     Route: 048
  5. PRILOSEC [Concomitant]
     Route: 048
  6. REGLAN [Concomitant]
     Route: 048
  7. DOXYCYCLINE [Concomitant]
     Route: 048
  8. OMEPRAZOLE [Concomitant]
  9. CEPHALEXIN [Concomitant]

REACTIONS (8)
  - ABDOMINAL PAIN [None]
  - ANXIETY [None]
  - DECREASED APPETITE [None]
  - DIARRHOEA [None]
  - EMOTIONAL DISORDER [None]
  - FEELING ABNORMAL [None]
  - NERVOUSNESS [None]
  - SLEEP DISORDER [None]
